FAERS Safety Report 6219392-6 (Version None)
Quarter: 2009Q2

REPORT INFORMATION
  Report Type: 
  Country: None (occurrence: None)
  Receive Date: 20090601
  Receipt Date: 20090511
  Transmission Date: 20091009
  Serious: Yes (Other)
  Sender: FDA-Public Use
  Company Number: WWISSUE-291

PATIENT
  Sex: Female
  Weight: 74.8435 kg

DRUGS (3)
  1. PREDNISONE TAB [Suspect]
     Indication: ARTHRITIS
     Dates: start: 20080401, end: 20090401
  2. PREDNISONE TAB [Suspect]
     Indication: DYSPNOEA
     Dates: start: 20080401, end: 20090401
  3. KENALOG SHOT (TRIAMCINOLONE - INJECTABLE CORTICOSTEROID THERAPY) [Concomitant]

REACTIONS (1)
  - WEIGHT INCREASED [None]
